FAERS Safety Report 5794405-4 (Version None)
Quarter: 2008Q2

REPORT INFORMATION
  Report Type: 
  Country: None (occurrence: None)
  Receive Date: 20080620
  Receipt Date: 20080610
  Transmission Date: 20081010
  Serious: Yes (Other)
  Sender: FDA-Public Use
  Company Number: 200813715

PATIENT
  Age: 21 Year
  Sex: Female

DRUGS (1)
  1. RHOPHYLAC [Suspect]
     Indication: PROPHYLAXIS AGAINST RH ISOIMMUNISATION
     Dosage: 2 ML ONCE
     Dates: start: 20080212, end: 20080212

REACTIONS (2)
  - INTRA-UTERINE DEATH [None]
  - MATERNAL DRUGS AFFECTING FOETUS [None]
